FAERS Safety Report 7551856-5 (Version None)
Quarter: 2011Q2

REPORT INFORMATION
  Report Type: 
  Country: None (occurrence: None)
  Receive Date: 20110616
  Receipt Date: 20110526
  Transmission Date: 20111010
  Serious: Yes (Hospitalization, Other)
  Sender: FDA-Public Use
  Company Number: US-BAYER-201035429NA

PATIENT
  Age: 24 Year
  Sex: Female
  Weight: 112.47 kg

DRUGS (2)
  1. ZOLPIDEM [Concomitant]
     Dosage: 10 MG, UNK
     Dates: start: 20090626
  2. YAZ [Suspect]
     Indication: CONTRACEPTION
     Dosage: UNK UNK, UNK
     Route: 048
     Dates: start: 20090818, end: 20090911

REACTIONS (1)
  - PULMONARY EMBOLISM [None]
